FAERS Safety Report 10108752 (Version 3)
Quarter: 2014Q2

REPORT INFORMATION
  Report Type: Spontaneous
  Country: US (occurrence: US)
  Receive Date: 20140425
  Receipt Date: 20140523
  Transmission Date: 20141212
  Serious: Yes (Other)
  Sender: FDA-Public Use
  Company Number: US-AMGEN-USASP2014023124

PATIENT
  Age: 68 Year
  Sex: Female

DRUGS (6)
  1. PROLIA [Suspect]
     Indication: OSTEOPOROSIS POSTMENOPAUSAL
     Dosage: 60 MG/ML, Q6MO
     Route: 058
     Dates: start: 20131123
  2. LISINOPRIL [Concomitant]
     Dosage: 10 MG, QD
     Route: 048
     Dates: start: 20140109
  3. VITAMIN D3 [Concomitant]
     Dosage: 2000 UNIT, QD
     Route: 048
  4. CALCIUM + VITAMIN D                /00944201/ [Concomitant]
     Dosage: 600 MG, BID
     Route: 048
  5. HYDROCODONE BIT. AND HOMATROPINE METH. [Concomitant]
     Indication: COUGH
     Dosage: 5 ML, Q6H
     Dates: start: 20131016
  6. ZYRTEC [Concomitant]
     Dosage: 10 MG, AS NECESSARY
     Route: 048
     Dates: start: 20140107

REACTIONS (13)
  - Impaired healing [Unknown]
  - Pain in jaw [Recovering/Resolving]
  - Stomatitis [Unknown]
  - Pain [Unknown]
  - Pharyngeal oedema [Unknown]
  - Tonsillar disorder [Unknown]
  - Toothache [Recovering/Resolving]
  - Gingival ulceration [Unknown]
  - Oedema peripheral [Unknown]
  - Oral disorder [Unknown]
  - Ulcer [Unknown]
  - Peripheral swelling [Unknown]
  - Muscle spasms [Unknown]
